FAERS Safety Report 5859128-1 (Version None)
Quarter: 2008Q3

REPORT INFORMATION
  Report Type: 
  Country: None (occurrence: None)
  Receive Date: 20080827
  Receipt Date: 20080820
  Transmission Date: 20090109
  Serious: Yes (Hospitalization)
  Sender: FDA-Public Use
  Company Number: PHHY2008GB18886

PATIENT
  Age: 65 Year
  Sex: Female

DRUGS (11)
  1. VALSARTAN [Suspect]
     Indication: HYPERTENSION
     Dosage: 25 MG
     Route: 048
     Dates: end: 20080722
  2. HYDROCHLOROTHIAZIDE [Suspect]
     Indication: HYPERTENSION
     Dosage: 100 MG
     Route: 048
     Dates: end: 20080722
  3. AMLODIPINE [Concomitant]
     Indication: HYPERTENSION
     Dosage: 5 MG, QD
     Dates: start: 20080709
  4. ARIPIPRAZOLE [Concomitant]
     Dosage: 300 MG, QD
  5. ACETYLSALICYLIC ACID SRT [Concomitant]
     Dosage: 75 MG, QD
  6. CO-CODAMOL [Concomitant]
     Indication: PAIN
     Dosage: UNK
  7. DOXAZOSIN MESYLATE [Concomitant]
     Indication: HYPERTENSION
     Dosage: 4 MG, QD
     Dates: start: 20080709
  8. FERROUS SULFATE TAB [Concomitant]
     Dosage: 200 MG, UNK
  9. IBUPROFEN [Concomitant]
     Dosage: 400 MG, TDS
  10. LANSOPRAZOLE [Concomitant]
     Dosage: 30 MG, QD
  11. SIMVASTATIN [Concomitant]
     Dosage: 20 MG, QD

REACTIONS (5)
  - ANAPHYLACTOID REACTION [None]
  - ANGIOEDEMA [None]
  - DYSPNOEA [None]
  - RASH [None]
  - WHEEZING [None]
